FAERS Safety Report 5320049-4 (Version None)
Quarter: 2007Q1

REPORT INFORMATION
  Report Type: 
  Country: None (occurrence: None)
  Receive Date: 20070215
  Receipt Date: 20060531
  Transmission Date: 20070707
  Serious: Yes (Hospitalization)
  Sender: FDA-Public Use
  Company Number: MC200600345

PATIENT

DRUGS (2)
  1. ANGIOMAX [Suspect]
     Dosage: 12 INFUSION, INTRAVENOUS
     Route: 042
     Dates: start: 20060101, end: 20060101
  2. REOPRO [Suspect]
     Dosage: 1 IN 1 TOTAL, INTRAVENOUS
     Route: 042
     Dates: start: 20060101, end: 20060101

REACTIONS (1)
  - COAGULATION TIME PROLONGED [None]
